FAERS Safety Report 7405793-7 (Version None)
Quarter: 2011Q2

REPORT INFORMATION
  Report Type: 
  Country: None (occurrence: None)
  Receive Date: 20110411
  Receipt Date: 20110405
  Transmission Date: 20111010
  Serious: Yes (Hospitalization, Other)
  Sender: FDA-Public Use
  Company Number: CA-ROCHE-769049

PATIENT
  Age: 53 Year
  Sex: Female
  Weight: 100 kg

DRUGS (1)
  1. XELODA [Suspect]
     Route: 048
     Dates: start: 20110309, end: 20110301

REACTIONS (3)
  - NEOPLASM MALIGNANT [None]
  - ARTERIOSPASM CORONARY [None]
  - DYSPEPSIA [None]
